FAERS Safety Report 11528218 (Version 2)
Quarter: 2015Q3

REPORT INFORMATION
  Report Type: Spontaneous
  Country: JP (occurrence: JP)
  Receive Date: 20150921
  Receipt Date: 20150929
  Transmission Date: 20151125
  Serious: Yes (Other)
  Sender: FDA-Public Use
  Company Number: JP-ACCORD-033806

PATIENT
  Age: 54 Year
  Sex: Female

DRUGS (6)
  1. ETOPOSIDE. [Suspect]
     Active Substance: ETOPOSIDE
     Indication: METASTASES TO LYMPH NODES
     Dosage: EIGHT CYCLES OF 50 MG/BODY ON DAYS 1 TO 21 AND EVERY 28 DAYS THEREAFTER
     Route: 048
     Dates: start: 201307
  2. DOXORUBICIN [Suspect]
     Active Substance: DOXORUBICIN
     Indication: METASTASES TO LYMPH NODES
     Dosage: TWO CYCLES OF PEGYLATED LIPOSOMAL DOXORUBICIN MONOTHERAPY
     Dates: start: 201105
  3. BEVACIZUMAB [Suspect]
     Active Substance: BEVACIZUMAB
     Indication: OVARIAN CANCER RECURRENT
     Dosage: 15 MG/KG ON DAY 1 AND EVERY 21 DAY THERE AFTER?TOTAL EIGHT CYCLE RECEIVED
     Dates: start: 201405
  4. GEMCITABINE/GEMCITABINE HYDROCHLORIDE [Suspect]
     Active Substance: GEMCITABINE\GEMCITABINE HYDROCHLORIDE
     Indication: METASTASES TO LYMPH NODES
     Dosage: 20 CYCLES ON DAY 1 AND EVERY 14 DAYS THEREAFTER
     Dates: start: 201109
  5. IRINOTECAN [Suspect]
     Active Substance: IRINOTECAN
     Indication: METASTASES TO LYMPH NODES
     Dates: start: 201307
  6. PACLITAXEL/PACLITAXEL LIPOSOME [Suspect]
     Active Substance: PACLITAXEL
     Indication: OVARIAN CANCER RECURRENT
     Dosage: ON DAY 1, 8 AND 15?TOTAL EIGHT CYCLE RECEIVED
     Dates: start: 201405

REACTIONS (6)
  - No therapeutic response [Not Recovered/Not Resolved]
  - Hypochloraemia [Unknown]
  - Hyponatraemia [Unknown]
  - Peripheral sensory neuropathy [Unknown]
  - Drug ineffective [Not Recovered/Not Resolved]
  - Condition aggravated [Not Recovered/Not Resolved]
